FAERS Safety Report 14163373 (Version 2)
Quarter: 2017Q4

REPORT INFORMATION
  Report Type: Spontaneous
  Country: JP (occurrence: JP)
  Receive Date: 20171106
  Receipt Date: 20171109
  Transmission Date: 20180321
  Serious: Yes (Hospitalization, Other)
  Sender: FDA-Public Use
  Company Number: JP-ALLERGAN-1762668US

PATIENT
  Sex: Female

DRUGS (7)
  1. LAMICTAL [Concomitant]
     Active Substance: LAMOTRIGINE
     Indication: PRODUCT USED FOR UNKNOWN INDICATION
     Dosage: 100 MG, 2 DOSES AFTER MEAL
     Route: 065
  2. SYRUP CONTRA TUSSI [Concomitant]
     Indication: PRODUCT USED FOR UNKNOWN INDICATION
     Route: 065
  3. TEGRETOL [Concomitant]
     Active Substance: CARBAMAZEPINE
     Indication: PRODUCT USED FOR UNKNOWN INDICATION
     Route: 065
  4. BOTOX [Suspect]
     Active Substance: ONABOTULINUMTOXINA
     Indication: BLEPHAROSPASM
     Dosage: UNK, SINGLE
     Route: 030
  5. L-CARNITIN [Concomitant]
     Indication: PRODUCT USED FOR UNKNOWN INDICATION
     Route: 065
  6. DEPAKENE [Concomitant]
     Active Substance: VALPROIC ACID
     Indication: PRODUCT USED FOR UNKNOWN INDICATION
     Route: 065
  7. INOVELON [Concomitant]
     Active Substance: RUFINAMIDE
     Indication: PRODUCT USED FOR UNKNOWN INDICATION
     Route: 065

REACTIONS (3)
  - Seizure [Unknown]
  - Malaise [Unknown]
  - Vomiting [Unknown]
